FAERS Safety Report 8409945-9 (Version None)
Quarter: 2012Q2

REPORT INFORMATION
  Report Type: 
  Country: None (occurrence: None)
  Receive Date: 20120605
  Receipt Date: 20120604
  Transmission Date: 20120825
  Serious: No
  Sender: FDA-Public Use
  Company Number: US-PFIZER INC-2012133870

PATIENT
  Sex: Male
  Weight: 74.8 kg

DRUGS (6)
  1. TRAZODONE [Concomitant]
     Indication: SLEEP DISORDER
     Dosage: 100 MG, DAILY
  2. SIMVASTATIN [Concomitant]
     Dosage: 40 MG, DAILY
  3. CELEBREX [Suspect]
     Indication: KNEE OPERATION
     Dosage: 200 MG, DAILY
     Dates: start: 20120420, end: 20120422
  4. LISINOPRIL [Concomitant]
     Dosage: UNK, DAILY
  5. ASPIRIN [Concomitant]
     Dosage: 81 MG, DAILY
  6. FOLIC ACID [Concomitant]
     Dosage: 1 MG, DAILY

REACTIONS (1)
  - RASH [None]
